FAERS Safety Report 10174661 (Version 3)
Quarter: 2014Q4

REPORT INFORMATION
  Report Type: Spontaneous
  Country: US (occurrence: US)
  Receive Date: 20140515
  Receipt Date: 20141003
  Transmission Date: 20150528
  Serious: Yes (Hospitalization)
  Sender: FDA-Public Use
  Company Number: US-GLAXOSMITHKLINE-A1073254A

PATIENT
  Age: 57 Year
  Sex: Female

DRUGS (22)
  1. FLEXERIL [Concomitant]
     Active Substance: CYCLOBENZAPRINE HYDROCHLORIDE
  2. ZESTORETIC [Concomitant]
     Active Substance: HYDROCHLOROTHIAZIDE\LISINOPRIL
  3. TRAZODONE [Concomitant]
     Active Substance: TRAZODONE HYDROCHLORIDE
  4. IRON [Concomitant]
     Active Substance: IRON
  5. MONTELUKAST [Concomitant]
     Active Substance: MONTELUKAST SODIUM
  6. VENTOLIN HFA [Suspect]
     Active Substance: ALBUTEROL SULFATE
     Indication: ASTHMA
     Dosage: 90MCG UNKNOWN
     Route: 065
     Dates: start: 20130822
  7. ATORVASTATIN [Concomitant]
     Active Substance: ATORVASTATIN
  8. RANITIDINE [Concomitant]
     Active Substance: RANITIDINE\RANITIDINE HYDROCHLORIDE
  9. BUSPIRONE [Concomitant]
     Active Substance: BUSPIRONE HYDROCHLORIDE
  10. NEBULIZER [Concomitant]
     Active Substance: UNSPECIFIED INGREDIENT
  11. ADVAIR HFA [Suspect]
     Active Substance: FLUTICASONE PROPIONATE\SALMETEROL XINAFOATE
     Indication: ASTHMA
     Route: 065
     Dates: start: 20121003
  12. FUROSEMIDE. [Concomitant]
     Active Substance: FUROSEMIDE
  13. HYDROXYZINE [Concomitant]
     Active Substance: HYDROXYZINE\HYDROXYZINE HYDROCHLORIDE
  14. INHALER [Concomitant]
     Active Substance: UNSPECIFIED INGREDIENT
  15. KLOR CON [Concomitant]
  16. ASPIRIN LOW DOSE [Concomitant]
     Active Substance: ASPIRIN
  17. KLONOPIN [Concomitant]
     Active Substance: CLONAZEPAM
  18. EFFEXOR XR [Concomitant]
     Active Substance: VENLAFAXINE HYDROCHLORIDE
  19. VITAMIN D [Concomitant]
     Active Substance: CHOLECALCIFEROL
  20. ASPIRIN LOW DOSE [Concomitant]
     Active Substance: ASPIRIN
  21. POTASSIUM [Concomitant]
     Active Substance: POTASSIUM
  22. WELLBUTRIN XL [Concomitant]
     Active Substance: BUPROPION HYDROCHLORIDE

REACTIONS (34)
  - Asthma [Unknown]
  - Presyncope [Unknown]
  - Confusional state [Not Recovered/Not Resolved]
  - Communication disorder [Unknown]
  - Abdominal pain upper [Unknown]
  - Asthenia [Unknown]
  - Weight increased [Unknown]
  - Coronary arterial stent insertion [Unknown]
  - Cardiac failure congestive [Unknown]
  - Panic attack [Unknown]
  - Feeling abnormal [Unknown]
  - Back pain [Unknown]
  - Feeding disorder [Unknown]
  - Fall [Unknown]
  - Impaired driving ability [Unknown]
  - Coronary artery occlusion [Unknown]
  - Coronary artery disease [Unknown]
  - Hyperhidrosis [Unknown]
  - Abasia [Unknown]
  - Memory impairment [Not Recovered/Not Resolved]
  - Pneumothorax [Unknown]
  - Road traffic accident [Unknown]
  - Memory impairment [Unknown]
  - Chills [Unknown]
  - Nausea [Unknown]
  - Depression [Unknown]
  - Peripheral swelling [Unknown]
  - Anxiety [Unknown]
  - Pruritus generalised [Unknown]
  - Malaise [Unknown]
  - Breath sounds abnormal [Unknown]
  - Dysstasia [Unknown]
  - Vomiting [Unknown]
  - Pain [Unknown]

NARRATIVE: CASE EVENT DATE: 201409
